FAERS Safety Report 25741347 (Version 1)
Quarter: 2025Q3

REPORT INFORMATION
  Report Type: Spontaneous
  Country: US (occurrence: None)
  Receive Date: 20250829
  Receipt Date: 20250829
  Transmission Date: 20251020
  Serious: Yes (Life-Threatening, Hospitalization)
  Sender: FDA-CTU
  Company Number: None

PATIENT
  Age: 36 Year
  Sex: Female
  Weight: 69.75 kg

DRUGS (3)
  1. EKTERLY [Suspect]
     Active Substance: SEBETRALSTAT
     Indication: Hereditary angioedema with normal C1 esterase inhibitor
     Route: 048
  2. ORLADEYO [Concomitant]
     Active Substance: BEROTRALSTAT HYDROCHLORIDE
  3. XOLAIR [Concomitant]
     Active Substance: OMALIZUMAB

REACTIONS (1)
  - Hypersensitivity [None]

NARRATIVE: CASE EVENT DATE: 20250825
